FAERS Safety Report 22113839 (Version 1)
Quarter: 2023Q1

REPORT INFORMATION
  Report Type: Other
  Country: CN (occurrence: None)
  Receive Date: 20230320
  Receipt Date: 20230320
  Transmission Date: 20230418
  Serious: Yes (Other)
  Sender: FDA-Public Use
  Company Number: CN-ROCHE-3312624

PATIENT
  Age: 45 Year
  Sex: Male

DRUGS (9)
  1. MABTHERA [Suspect]
     Active Substance: RITUXIMAB
     Indication: Angiocentric lymphoma
     Route: 065
     Dates: start: 201711
  2. CYCLOPHOSPHAMIDE [Suspect]
     Active Substance: CYCLOPHOSPHAMIDE
     Indication: Angiocentric lymphoma
     Route: 065
     Dates: start: 201708
  3. CYCLOPHOSPHAMIDE [Suspect]
     Active Substance: CYCLOPHOSPHAMIDE
     Route: 065
     Dates: start: 201711
  4. EPIRUBICIN [Suspect]
     Active Substance: EPIRUBICIN
     Indication: Angiocentric lymphoma
     Route: 065
     Dates: start: 201708
  5. EPIRUBICIN [Suspect]
     Active Substance: EPIRUBICIN
     Route: 065
     Dates: start: 201711
  6. VINDESINE [Suspect]
     Active Substance: VINDESINE
     Indication: Angiocentric lymphoma
     Route: 065
     Dates: start: 201708
  7. VINDESINE [Suspect]
     Active Substance: VINDESINE
     Route: 065
     Dates: start: 201711
  8. PREDNISONE [Suspect]
     Active Substance: PREDNISONE
     Indication: Angiocentric lymphoma
     Route: 065
     Dates: start: 201708
  9. PREDNISONE [Suspect]
     Active Substance: PREDNISONE
     Route: 065
     Dates: start: 201711

REACTIONS (2)
  - Myelosuppression [Unknown]
  - Off label use [Unknown]
